FAERS Safety Report 8791912 (Version 1)
Quarter: 2012Q4

REPORT INFORMATION
  Report Type: 
  Country: US (occurrence: US)
  Receive Date: 20120918
  Receipt Date: 20120918
  Transmission Date: 20130627
  Serious: No
  Sender: FDA-Public Use
  Company Number: US-ASTRAZENECA-2012SE70998

PATIENT
  Sex: Female

DRUGS (3)
  1. NEXIUM [Suspect]
     Route: 048
     Dates: start: 2002
  2. CRESTOR [Suspect]
     Route: 048
     Dates: start: 2002
  3. ZOMIG [Suspect]
     Dates: start: 2002

REACTIONS (1)
  - Fall [Unknown]
